FAERS Safety Report 12469948 (Version 1)
Quarter: 2016Q2

REPORT INFORMATION
  Report Type: Spontaneous
  Country: US (occurrence: US)
  Receive Date: 20160615
  Receipt Date: 20160615
  Transmission Date: 20160815
  Serious: No
  Sender: FDA-Public Use
  Company Number: US-BAYER-2016-117455

PATIENT
  Age: 80 Year
  Sex: Female
  Weight: 65.76 kg

DRUGS (11)
  1. VECTACIN [Concomitant]
     Dosage: UNK
  2. ATORVASTATIN [Concomitant]
     Active Substance: ATORVASTATIN
     Dosage: UNK
  3. PEPCID [Concomitant]
     Active Substance: FAMOTIDINE
     Dosage: UNK
  4. TIMOLOL. [Concomitant]
     Active Substance: TIMOLOL
     Dosage: UNK
  5. LORAZEPAM. [Concomitant]
     Active Substance: LORAZEPAM
     Dosage: UNK
  6. MIRALAX [Suspect]
     Active Substance: POLYETHYLENE GLYCOL 3350
     Dosage: 1 DF, QD
     Route: 048
  7. ATENOLOL. [Concomitant]
     Active Substance: ATENOLOL
     Dosage: UNK
  8. CLARIDON [Concomitant]
     Dosage: UNK
  9. NEXIUM [Concomitant]
     Active Substance: ESOMEPRAZOLE MAGNESIUM
     Dosage: UNK
  10. DESONATE [Concomitant]
     Active Substance: DESONIDE
     Dosage: UNK
  11. RESTASIS [Concomitant]
     Active Substance: CYCLOSPORINE
     Dosage: UNK

REACTIONS (6)
  - Flatulence [Not Recovered/Not Resolved]
  - Drug ineffective [None]
  - Product use issue [None]
  - Off label use [None]
  - Abdominal distension [Not Recovered/Not Resolved]
  - Abdominal discomfort [Not Recovered/Not Resolved]

NARRATIVE: CASE EVENT DATE: 20160613
